FAERS Safety Report 20564613 (Version 1)
Quarter: 2022Q1

REPORT INFORMATION
  Report Type: Spontaneous
  Country: FR (occurrence: FR)
  Receive Date: 20220308
  Receipt Date: 20220308
  Transmission Date: 20220423
  Serious: Yes (Hospitalization, Congenital Anomaly, Other)
  Sender: FDA-Public Use
  Company Number: FR-ABBVIE-22K-056-4300473-00

PATIENT
  Sex: Female
  Weight: 2.5 kg

DRUGS (2)
  1. VALPROATE SODIUM [Suspect]
     Active Substance: VALPROATE SODIUM
     Indication: Maternal exposure timing unspecified
     Route: 064
  2. DIETARY SUPPLEMENT [Concomitant]
     Active Substance: DIETARY SUPPLEMENT
     Indication: Product used for unknown indication

REACTIONS (48)
  - Bone demineralisation [Unknown]
  - Hypotonia [Unknown]
  - Gastrooesophageal reflux disease [Unknown]
  - Febrile infection [Recovered/Resolved]
  - Vomiting projectile [Unknown]
  - Dysmorphism [Unknown]
  - Hypermetropia [Unknown]
  - Growth retardation [Unknown]
  - Speech disorder developmental [Unknown]
  - Psychomotor retardation [Unknown]
  - Speech disorder [Unknown]
  - Language disorder [Recovering/Resolving]
  - Oral disorder [Unknown]
  - Vesicoureteric reflux [Unknown]
  - Pyelonephritis [Unknown]
  - Headache [Unknown]
  - Talipes [Unknown]
  - Psychomotor skills impaired [Unknown]
  - Psychomotor hyperactivity [Recovered/Resolved]
  - Motor dysfunction [Recovered/Resolved]
  - Impulsive behaviour [Recovered/Resolved]
  - Dysmorphism [Unknown]
  - Nervous system disorder [Unknown]
  - Hypermetropia [Unknown]
  - Cognitive disorder [Unknown]
  - Attention deficit hyperactivity disorder [Unknown]
  - Affect lability [Unknown]
  - Regurgitation [Unknown]
  - Pyelocaliectasis [Unknown]
  - Chalazion [Unknown]
  - Mucosal hypertrophy [Unknown]
  - Reflux nephropathy [Unknown]
  - Weight gain poor [Unknown]
  - Gastrointestinal mucosal disorder [Unknown]
  - Autism spectrum disorder [Unknown]
  - Psychomotor skills impaired [Unknown]
  - Developmental delay [Unknown]
  - Learning disorder [Unknown]
  - Developmental delay [Unknown]
  - Urinary tract infection [Recovered/Resolved]
  - Agitation [Recovered/Resolved]
  - Agitation [Unknown]
  - Urinary tract infection [Recovered/Resolved]
  - Head circumference abnormal [Unknown]
  - Malnutrition [Unknown]
  - Strabismus [Unknown]
  - Foetal exposure during pregnancy [Unknown]
  - Urinary tract infection [Unknown]

NARRATIVE: CASE EVENT DATE: 20081001
